FAERS Safety Report 6096709-7 (Version None)
Quarter: 2009Q1

REPORT INFORMATION
  Report Type: 
  Country: None (occurrence: None)
  Receive Date: 20090225
  Receipt Date: 20090225
  Transmission Date: 20090719
  Serious: No
  Sender: FDA-Public Use
  Company Number: None

PATIENT
  Age: 59 Year
  Sex: Male
  Weight: 112 kg

DRUGS (2)
  1. NORTRIPTYLINE HCL [Suspect]
     Indication: PAIN
     Dosage: 10-20 MG AT BEDTIME PO
     Route: 048
     Dates: start: 20080325, end: 20081114
  2. NORTRIPTYLINE HCL [Suspect]
     Indication: SLEEP DISORDER
     Dosage: 10-20 MG AT BEDTIME PO
     Route: 048
     Dates: start: 20080325, end: 20081114

REACTIONS (2)
  - DEPRESSION [None]
  - SUICIDAL IDEATION [None]
